FAERS Safety Report 20945873 (Version 1)
Quarter: 2022Q2

REPORT INFORMATION
  Report Type: Spontaneous
  Country: US (occurrence: US)
  Receive Date: 20220610
  Receipt Date: 20220610
  Transmission Date: 20220720
  Serious: No
  Sender: FDA-Public Use
  Company Number: US-GILEAD-2022-0583879

PATIENT
  Sex: Female

DRUGS (10)
  1. EPCLUSA [Suspect]
     Active Substance: SOFOSBUVIR\VELPATASVIR
     Indication: Chronic hepatitis C
     Dosage: 1 DOSAGE FORM, QD
     Route: 048
     Dates: start: 20220523
  2. TIZANIDINE [Concomitant]
     Active Substance: TIZANIDINE
  3. CARVEDILOL [Concomitant]
     Active Substance: CARVEDILOL
  4. TRAZODONE HYDROCHLORIDE [Concomitant]
     Active Substance: TRAZODONE HYDROCHLORIDE
  5. DICLOFENAC [Concomitant]
     Active Substance: DICLOFENAC
  6. OMEPRAZOLE [Concomitant]
     Active Substance: OMEPRAZOLE
  7. LISINOPRIL [Concomitant]
     Active Substance: LISINOPRIL
  8. MOMETASONE FUROATE [Concomitant]
     Active Substance: MOMETASONE FUROATE
  9. DULOXETINE HYDROCHLORIDE [Concomitant]
     Active Substance: DULOXETINE HYDROCHLORIDE
  10. GABAPENTIN [Concomitant]
     Active Substance: GABAPENTIN

REACTIONS (1)
  - Thinking abnormal [Unknown]
